FAERS Safety Report 9154757 (Version 1)
Quarter: 2013Q1

REPORT INFORMATION
  Report Type: Spontaneous
  Country: US (occurrence: US)
  Receive Date: 20130311
  Receipt Date: 20130311
  Transmission Date: 20140127
  Serious: No
  Sender: FDA-Public Use
  Company Number: US-ABBOTT-12P-163-0918647-00

PATIENT
  Age: 46 Year
  Sex: Female
  Weight: 103.51 kg

DRUGS (2)
  1. LUPRON DEPOT 11.25 MG [Suspect]
     Indication: ENDOMETRIOSIS
     Route: 030
     Dates: start: 20120127
  2. AMBIEN [Concomitant]
     Indication: INSOMNIA
     Dosage: 1 TABLET WHEN NEEDED FOR SLEEP

REACTIONS (1)
  - Vaginal haemorrhage [Not Recovered/Not Resolved]
